FAERS Safety Report 17870799 (Version 1)
Quarter: 2020Q2

REPORT INFORMATION
  Report Type: Report from Study
  Country: US (occurrence: US)
  Receive Date: 20200608
  Receipt Date: 20200608
  Transmission Date: 20200714
  Serious: Yes (Hospitalization)
  Sender: FDA-Public Use
  Company Number: US-BEH-2020118268

PATIENT
  Age: 18 Year
  Sex: Female

DRUGS (1)
  1. PRIVIGEN [Suspect]
     Active Substance: HUMAN IMMUNOGLOBULIN G
     Indication: DERMATOMYOSITIS
     Dosage: UNK
     Route: 042

REACTIONS (4)
  - Gastrointestinal disorder [Unknown]
  - No adverse event [Unknown]
  - Product use in unapproved indication [Unknown]
  - Gastrointestinal disorder [Recovered/Resolved]
